FAERS Safety Report 6754439-X (Version None)
Quarter: 2010Q2

REPORT INFORMATION
  Report Type: 
  Country: None (occurrence: None)
  Receive Date: 20100603
  Receipt Date: 20100524
  Transmission Date: 20101027
  Serious: Yes (Other)
  Sender: FDA-Public Use
  Company Number: PHHY2010AU19481

PATIENT
  Sex: Female
  Weight: 72.5 kg

DRUGS (3)
  1. EXFORGE [Suspect]
     Indication: HYPERTENSION
     Dosage: TABLET (160/10 MG), MANE
     Route: 048
     Dates: start: 20091006, end: 20100106
  2. EXFORGE [Suspect]
     Dosage: TABLET (160/5 MG), MANE
     Route: 048
     Dates: start: 20100107
  3. ASPIRIN [Concomitant]
     Indication: CHEST PAIN
     Dosage: 100 MG, MANE
     Route: 048
     Dates: start: 20080626

REACTIONS (3)
  - DEAFNESS [None]
  - JOINT SWELLING [None]
  - TINNITUS [None]
